FAERS Safety Report 5638542-3 (Version None)
Quarter: 2008Q1

REPORT INFORMATION
  Report Type: 
  Country: None (occurrence: None)
  Receive Date: 20080226
  Receipt Date: 20070405
  Transmission Date: 20080703
  Serious: No
  Sender: FDA-Public Use
  Company Number: A0646109A

PATIENT
  Age: 36 Year
  Sex: Male

DRUGS (1)
  1. IMITREX [Suspect]
     Indication: CLUSTER HEADACHE
     Dosage: 6MG THREE TIMES PER DAY
     Route: 058
     Dates: start: 20020101

REACTIONS (1)
  - OVERDOSE [None]
